FAERS Safety Report 6716086-5 (Version None)
Quarter: 2010Q2

REPORT INFORMATION
  Report Type: 
  Country: None (occurrence: None)
  Receive Date: 20100507
  Receipt Date: 20100429
  Transmission Date: 20101027
  Serious: Yes (Hospitalization)
  Sender: FDA-Public Use
  Company Number: B0623690A

PATIENT

DRUGS (4)
  1. LAPATINIB [Suspect]
     Indication: BREAST CANCER
     Route: 048
     Dates: start: 20091211
  2. PACLITAXEL [Suspect]
     Indication: BREAST CANCER
     Dosage: 80MGM2 WEEKLY
     Route: 042
     Dates: start: 20091211, end: 20091211
  3. DOCETAXEL [Suspect]
     Indication: BREAST CANCER
     Dosage: 75MGM2 EVERY 3 WEEKS
     Route: 042
     Dates: start: 20091223
  4. PEGFILGRASTIM [Concomitant]
     Dosage: 6MG PER DAY
     Dates: start: 20091224

REACTIONS (6)
  - ARRHYTHMIA [None]
  - ASTHENIA [None]
  - CHEST DISCOMFORT [None]
  - DECREASED APPETITE [None]
  - DIARRHOEA [None]
  - DYSPHAGIA [None]
